FAERS Safety Report 5144037-6 (Version None)
Quarter: 2006Q4

REPORT INFORMATION
  Report Type: 
  Country: None (occurrence: None)
  Receive Date: 20061106
  Receipt Date: 20060606
  Transmission Date: 20070319
  Serious: No
  Sender: FDA-Public Use
  Company Number: US-GLAXOSMITHKLINE-A0608069A

PATIENT
  Sex: Female

DRUGS (1)
  1. AMOXIL [Suspect]
     Dosage: 500MG THREE TIMES PER DAY
     Route: 048

REACTIONS (1)
  - DRUG SCREEN POSITIVE [None]
